FAERS Safety Report 9918940 (Version 1)
Quarter: 2014Q1

REPORT INFORMATION
  Report Type: Spontaneous
  Country: FR (occurrence: FR)
  Receive Date: 20140224
  Receipt Date: 20140224
  Transmission Date: 20141002
  Serious: Yes (Hospitalization, Other)
  Sender: FDA-Public Use
  Company Number: FR-MERCK-1402FRA007158

PATIENT
  Age: 12 Year
  Sex: Male

DRUGS (13)
  1. TIENAM 500MG/500MG, POUDRE POUR PERFUSION [Suspect]
     Dosage: UNK
     Dates: start: 20130522
  2. VANCOMYCIN [Suspect]
     Dosage: UNK
     Route: 042
     Dates: start: 20130521
  3. ZOVIRAX [Suspect]
     Indication: PROPHYLAXIS
     Dosage: UNK
     Route: 042
     Dates: start: 20130523
  4. CANCIDAS [Suspect]
     Indication: PROPHYLAXIS
     Dosage: UNK
     Route: 042
     Dates: start: 20130523
  5. FORTUM [Suspect]
     Indication: PYREXIA
     Dosage: UNK
     Route: 042
     Dates: start: 20130521, end: 20130521
  6. METHOTREXATE [Concomitant]
     Dosage: UNK
     Dates: start: 20130523
  7. CYTARABINE [Concomitant]
     Dosage: UNK
     Dates: start: 20130523
  8. METHYLPREDNISOLONE [Concomitant]
     Dosage: UNK
     Dates: start: 20130523
  9. NELARABINE [Concomitant]
     Dosage: UNK
     Dates: start: 20130524
  10. ETOPOSIDE [Concomitant]
     Dosage: UNK
     Dates: start: 20130524
  11. CYCLOPHOSPHAMIDE [Concomitant]
     Dosage: UNK
     Dates: start: 20130524
  12. MESNA [Concomitant]
     Dosage: UNK
     Dates: start: 20130524
  13. ZOPHREN (ONDANSETRON HYDROCHLORIDE) [Concomitant]
     Dosage: UNK
     Dates: start: 20130524

REACTIONS (3)
  - Agranulocytosis [Not Recovered/Not Resolved]
  - Leukopenia [Not Recovered/Not Resolved]
  - Thrombocytopenia [Not Recovered/Not Resolved]
